FAERS Safety Report 13556778 (Version 1)
Quarter: 2017Q2

REPORT INFORMATION
  Report Type: Spontaneous
  Country: US (occurrence: US)
  Receive Date: 20170517
  Receipt Date: 20170517
  Transmission Date: 20170830
  Serious: No
  Sender: FDA-Public Use
  Company Number: US-SA-2017SA072236

PATIENT
  Age: 54 Year
  Sex: Female

DRUGS (3)
  1. SOLOSTAR [Concomitant]
     Active Substance: DEVICE
  2. NOVOLOG [Concomitant]
     Active Substance: INSULIN ASPART
     Dosage: 10-15 UNITS TID
  3. TOUJEO [Suspect]
     Active Substance: INSULIN GLARGINE
     Indication: TYPE 2 DIABETES MELLITUS
     Dosage: DOSE:35 UNIT(S)
     Route: 065

REACTIONS (16)
  - Rash pruritic [Unknown]
  - Erythema [Unknown]
  - Palpitations [Unknown]
  - Hypoaesthesia [Unknown]
  - Blood glucose increased [Unknown]
  - Nail disorder [Unknown]
  - Blood potassium abnormal [Unknown]
  - Hypoglycaemia [Unknown]
  - Burning sensation [Unknown]
  - Rash pruritic [Recovered/Resolved]
  - Nail discolouration [Unknown]
  - Pruritus generalised [Unknown]
  - Asthma [Unknown]
  - Muscle spasms [Unknown]
  - Atrioventricular block [Unknown]
  - Condition aggravated [Unknown]

NARRATIVE: CASE EVENT DATE: 2016
